FAERS Safety Report 6522112-9 (Version None)
Quarter: 2009Q4

REPORT INFORMATION
  Report Type: 
  Country: None (occurrence: None)
  Receive Date: 20091229
  Receipt Date: 20091229
  Transmission Date: 20100525
  Serious: No
  Sender: FDA-Public Use
  Company Number: None

PATIENT
  Age: 56 Year
  Sex: Female
  Weight: 68.6 kg

DRUGS (4)
  1. VALPROIC ACID [Suspect]
     Indication: CONVULSION
     Dosage: 1400 MG IV LD; 25 MG IV Q 8 O
     Route: 042
     Dates: start: 20091017
  2. MEROPENEM [Suspect]
     Indication: FEBRILE NEUTROPENIA
     Dosage: 1 GM IV OF 8 O
     Route: 042
     Dates: start: 20091017, end: 20091019
  3. PHENYTOIN [Concomitant]
  4. PHENOBARB [Concomitant]

REACTIONS (2)
  - CONVULSION [None]
  - FEBRILE NEUTROPENIA [None]
